FAERS Safety Report 14425679 (Version 1)
Quarter: 2018Q1

REPORT INFORMATION
  Report Type: Spontaneous
  Country: US (occurrence: US)
  Receive Date: 20180122
  Receipt Date: 20180122
  Transmission Date: 20180509
  Serious: Yes (Hospitalization)
  Sender: FDA-Public Use
  Company Number: None

PATIENT
  Age: 85 Year
  Sex: Female
  Weight: 78 kg

DRUGS (1)
  1. IOHEXOL 240 [Suspect]
     Active Substance: IOHEXOL
     Indication: SPINAL MYELOGRAM
     Dosage: ?          OTHER FREQUENCY:ONCE;?
     Dates: start: 20170804, end: 20170804

REACTIONS (10)
  - Dysarthria [None]
  - Blood pressure systolic increased [None]
  - Metabolic encephalopathy [None]
  - Hypertension [None]
  - Contrast media reaction [None]
  - Headache [None]
  - Pyrexia [None]
  - Meningitis chemical [None]
  - Lethargy [None]
  - Facial paralysis [None]

NARRATIVE: CASE EVENT DATE: 20170805
